FAERS Safety Report 10358719 (Version 1)
Quarter: 2014Q3

REPORT INFORMATION
  Report Type: Spontaneous
  Country: US (occurrence: US)
  Receive Date: 20140804
  Receipt Date: 20140804
  Transmission Date: 20150326
  Serious: No
  Sender: FDA-Public Use
  Company Number: US-B.I. PHARMACEUTICALS,INC./RIDGEFIELD-2014-BI-33721BP

PATIENT
  Sex: Female

DRUGS (8)
  1. TRIAMTERENE. [Concomitant]
     Active Substance: TRIAMTERENE
     Indication: MENIERE^S DISEASE
     Dosage: DOSE PER APPLICATION AND DAILY DOSE: 75/50 MG
     Route: 065
  2. MOBIC [Suspect]
     Active Substance: MELOXICAM
     Indication: PRODUCT USED FOR UNKNOWN INDICATION
     Dosage: 15 MG
     Route: 065
     Dates: end: 201404
  3. WELLBUTRIN [Concomitant]
     Active Substance: BUPROPION HYDROCHLORIDE
     Indication: DEPRESSION
     Dosage: 400 MG
     Route: 065
  4. HUMIRA [Suspect]
     Active Substance: ADALIMUMAB
     Indication: PSORIASIS
     Dosage: 40 MG
     Route: 065
     Dates: start: 2006
  5. HUMIRA [Suspect]
     Active Substance: ADALIMUMAB
     Indication: PSORIATIC ARTHROPATHY
     Dosage: 40 MG
     Route: 065
  6. ZOLOFT [Concomitant]
     Active Substance: SERTRALINE HYDROCHLORIDE
     Indication: DEPRESSION
     Dosage: 50 MG
     Route: 065
  7. SYNTHROID [Concomitant]
     Active Substance: LEVOTHYROXINE SODIUM
     Indication: HYPOTHYROIDISM
     Dosage: 250 MCG
     Route: 065
  8. AMBIEN [Concomitant]
     Active Substance: ZOLPIDEM TARTRATE
     Indication: SLEEP DISORDER
     Dosage: 12.5 MG
     Route: 065

REACTIONS (16)
  - Psoriasis [Unknown]
  - Bronchitis [Unknown]
  - Fatigue [Unknown]
  - Drug effect decreased [Unknown]
  - Arthralgia [Unknown]
  - Weight decreased [Unknown]
  - Anaemia [Unknown]
  - Pulmonary congestion [Unknown]
  - Ulcer [Unknown]
  - Abdominal pain upper [Unknown]
  - Haematochezia [Unknown]
  - Constipation [Unknown]
  - Arthritis [Unknown]
  - Sinus congestion [Unknown]
  - Psoriasis [Unknown]
  - Psoriatic arthropathy [Unknown]

NARRATIVE: CASE EVENT DATE: 2006
